FAERS Safety Report 7844671-6 (Version None)
Quarter: 2011Q4

REPORT INFORMATION
  Report Type: 
  Country: None (occurrence: None)
  Receive Date: 20111025
  Receipt Date: 20111019
  Transmission Date: 20120403
  Serious: Yes (Other)
  Sender: FDA-Public Use
  Company Number: US-AMGEN-USASP2011054162

PATIENT
  Age: 83 Year
  Sex: Female

DRUGS (3)
  1. SENSIPAR [Suspect]
     Indication: PRODUCT USED FOR UNKNOWN INDICATION
     Dosage: UNK
  2. HECTOROL [Concomitant]
  3. PROLIA [Suspect]
     Indication: OSTEITIS DEFORMANS
     Dosage: 60 MG, UNK
     Dates: start: 20110901

REACTIONS (3)
  - BLOOD CALCIUM DECREASED [None]
  - OSTEITIS DEFORMANS [None]
  - BLOOD PARATHYROID HORMONE INCREASED [None]
